FAERS Safety Report 10254613 (Version 1)
Quarter: 2014Q2

REPORT INFORMATION
  Report Type: Spontaneous
  Country: US (occurrence: None)
  Receive Date: 20140620
  Receipt Date: 20140620
  Transmission Date: 20141212
  Serious: Yes (Other)
  Sender: FDA-Public Use
  Company Number: None

PATIENT
  Age: 54 Year
  Sex: Female

DRUGS (1)
  1. SOVALDI 400MG GILEAD SCIENCES [Suspect]
     Indication: CHRONIC HEPATITIS C
     Route: 048
     Dates: start: 20140422

REACTIONS (2)
  - Palpitations [None]
  - Insomnia [None]
